FAERS Safety Report 5604503-3 (Version None)
Quarter: 2008Q1

REPORT INFORMATION
  Report Type: 
  Country: None (occurrence: None)
  Receive Date: 20080128
  Receipt Date: 20080124
  Transmission Date: 20080703
  Serious: Yes (Other)
  Sender: FDA-Public Use
  Company Number: JP-BRISTOL-MYERS SQUIBB COMPANY-14054910

PATIENT
  Age: 78 Year
  Sex: Male

DRUGS (2)
  1. BRIPLATIN [Suspect]
     Indication: GASTRIC CANCER
     Route: 041
  2. TAXOL [Suspect]
     Indication: GASTRIC CANCER
     Route: 041

REACTIONS (1)
  - ANAPHYLACTOID SHOCK [None]
